FAERS Safety Report 16253573 (Version 1)
Quarter: 2019Q2

REPORT INFORMATION
  Report Type: Spontaneous
  Country: DE (occurrence: DE)
  Receive Date: 20190430
  Receipt Date: 20190430
  Transmission Date: 20190711
  Serious: Yes (Hospitalization)
  Sender: FDA-Public Use
  Company Number: DE-TEVA-2019-DE-1041893

PATIENT
  Age: 54 Year
  Sex: Female

DRUGS (15)
  1. METOBETA [Interacting]
     Active Substance: METOPROLOL TARTRATE
     Dosage: 190 MILLIGRAM DAILY; SINCE RECORDING
  2. VIGANTOLETTEN [Interacting]
     Active Substance: CHOLECALCIFEROL
     Dosage: 20000 IU (INTERNATIONAL UNIT) DAILY; SINCE RECORDING
  3. NORTRILEN [Interacting]
     Active Substance: NORTRIPTYLINE
     Dosage: 50 MILLIGRAM DAILY;
     Dates: start: 20170306, end: 20170309
  4. CALCIUM SANDOZ [Concomitant]
     Active Substance: CALCIUM
     Dosage: 500 MILLIGRAM DAILY; SINCE RECORDING
  5. AMLODIPINE [Interacting]
     Active Substance: AMLODIPINE BESYLATE
     Dosage: 5 MILLIGRAM DAILY; SINCE RECORDING
  6. NORTRILEN [Interacting]
     Active Substance: NORTRIPTYLINE
     Dosage: 50 MILLIGRAM DAILY;
     Dates: start: 20170323
  7. PLAVIX [Interacting]
     Active Substance: CLOPIDOGREL BISULFATE
     Dosage: 75 MILLIGRAM DAILY; SINCE RECORDING
  8. SIMVAHEXAL [Interacting]
     Active Substance: SIMVASTATIN
     Dosage: 20 MILLIGRAM DAILY; SINCE RECORDING
  9. NORTRILEN [Interacting]
     Active Substance: NORTRIPTYLINE
     Dosage: 75 MILLIGRAM DAILY;
     Dates: start: 20170310, end: 20170315
  10. NORTRILEN [Interacting]
     Active Substance: NORTRIPTYLINE
     Dosage: 25 MILLIGRAM DAILY;
     Dates: start: 20170302, end: 20170305
  11. LITHIUM ^APOGEPHA^ [Concomitant]
     Active Substance: LITHIUM CARBONATE
     Dosage: 225 MILLIGRAM DAILY;
     Dates: start: 20170321
  12. VENLAFAXINE [Suspect]
     Active Substance: VENLAFAXINE HYDROCHLORIDE
     Dosage: 75 MILLIGRAM DAILY;
     Dates: start: 20170310
  13. NORTRILEN [Interacting]
     Active Substance: NORTRIPTYLINE
     Dosage: 100 MILLIGRAM DAILY;
     Dates: start: 20170316, end: 20170322
  14. VALDOXAN [Concomitant]
     Active Substance: AGOMELATINE
     Dosage: 50 MILLIGRAM DAILY; 1 DAY IN ADVANCE DEPOSED
  15. MAGNESIUM [Concomitant]
     Active Substance: MAGNESIUM
     Dosage: 150 MILLIGRAM DAILY; SINCE RECORDING

REACTIONS (2)
  - Sleep disorder [Recovered/Resolved]
  - Drug interaction [Unknown]

NARRATIVE: CASE EVENT DATE: 20170322
